FAERS Safety Report 9262331 (Version 1)
Quarter: 2013Q2

REPORT INFORMATION
  Report Type: Spontaneous
  Country: US (occurrence: None)
  Receive Date: 20130425
  Receipt Date: 20130425
  Transmission Date: 20140414
  Serious: Yes (Other)
  Sender: FDA-Public Use
  Company Number: None

PATIENT
  Age: 63 Year
  Sex: Female
  Weight: 68.04 kg

DRUGS (2)
  1. FEMARA [Suspect]
     Dosage: 1X A DAY
     Dates: start: 20091010, end: 20111101
  2. LETROZOLE [Suspect]
     Dosage: 1X A DAY
     Route: 048
     Dates: start: 20111101, end: 20130424

REACTIONS (2)
  - Muscle spasms [None]
  - Muscle spasms [None]
